FAERS Safety Report 7475799-0 (Version None)
Quarter: 2011Q2

REPORT INFORMATION
  Report Type: 
  Country: None (occurrence: None)
  Receive Date: 20110512
  Receipt Date: 20110509
  Transmission Date: 20111010
  Serious: Yes (Other)
  Sender: FDA-Public Use
  Company Number: GB-PFIZER INC-2011099697

PATIENT
  Age: 33 Year
  Sex: Female

DRUGS (11)
  1. METHOTREXATE [Suspect]
     Indication: BURKITT'S LYMPHOMA
  2. EMTRICITABINE [Concomitant]
  3. RALTEGRAVIR [Concomitant]
  4. DOXORUBICIN HCL [Suspect]
     Indication: BURKITT'S LYMPHOMA
     Route: 042
  5. IFOSFAMIDE [Suspect]
     Indication: BURKITT'S LYMPHOMA
  6. VINCRISTINE [Suspect]
     Indication: BURKITT'S LYMPHOMA
  7. ETRAVIRINE [Concomitant]
  8. CYTARABINE [Suspect]
     Indication: BURKITT'S LYMPHOMA
  9. ETOPOSIDE [Suspect]
     Indication: BURKITT'S LYMPHOMA
  10. TENOFOVIR [Concomitant]
  11. CYCLOPHOSPHAMIDE [Suspect]
     Indication: BURKITT'S LYMPHOMA

REACTIONS (3)
  - MUCOSAL INFLAMMATION [None]
  - OESOPHAGEAL CANDIDIASIS [None]
  - PNEUMOCYSTIS JIROVECI PNEUMONIA [None]
